FAERS Safety Report 14046146 (Version 1)
Quarter: 2017Q4

REPORT INFORMATION
  Report Type: Report from Study
  Country: None (occurrence: US)
  Receive Date: 20171005
  Receipt Date: 20171005
  Transmission Date: 20180321
  Serious: Yes (Hospitalization)
  Sender: FDA-Public Use
  Company Number: US-ABBVIE-17K-163-2117488-00

PATIENT
  Sex: Male

DRUGS (2)
  1. HUMIRA [Suspect]
     Active Substance: ADALIMUMAB
     Route: 058
     Dates: start: 2017
  2. HUMIRA [Suspect]
     Active Substance: ADALIMUMAB
     Indication: PSORIATIC ARTHROPATHY
     Route: 058
     Dates: start: 2016, end: 2017

REACTIONS (6)
  - White blood cell count decreased [Unknown]
  - Physical assault [Unknown]
  - Pulmonary oedema [Unknown]
  - Pneumonia [Unknown]
  - Amnesia [Unknown]
  - Aneurysm [Unknown]

NARRATIVE: CASE EVENT DATE: 2016
